FAERS Safety Report 21343572 (Version 3)
Quarter: 2022Q4

REPORT INFORMATION
  Report Type: Spontaneous
  Country: US (occurrence: US)
  Receive Date: 20220916
  Receipt Date: 20221115
  Transmission Date: 20230113
  Serious: No
  Sender: FDA-Public Use
  Company Number: US-SA-SAC20220909001483

PATIENT
  Age: 21 Year
  Sex: Female

DRUGS (2)
  1. DUPIXENT [Suspect]
     Active Substance: DUPILUMAB
     Indication: Dermatitis atopic
     Dosage: 300 MG, QOW
     Route: 058
     Dates: start: 20210225
  2. PROTOPIC [Concomitant]
     Active Substance: TACROLIMUS
     Dosage: UNK

REACTIONS (2)
  - Dermatitis atopic [Unknown]
  - Drug ineffective [Unknown]
